FAERS Safety Report 16411758 (Version 1)
Quarter: 2019Q2

REPORT INFORMATION
  Report Type: Spontaneous
  Country: FR (occurrence: FR)
  Receive Date: 20190610
  Receipt Date: 20190610
  Transmission Date: 20190711
  Serious: Yes (Life-Threatening)
  Sender: FDA-Public Use
  Company Number: FR-MYLANLABS-2019M1052825

PATIENT
  Age: 67 Year
  Sex: Female
  Weight: 61 kg

DRUGS (10)
  1. ROCEPHINE [Suspect]
     Active Substance: CEFTRIAXONE SODIUM
     Indication: APLASIA
     Dosage: 1 DOSAGE FORM, QD
     Route: 042
     Dates: start: 20181012, end: 20181018
  2. CICLOSPORINE [Suspect]
     Active Substance: CYCLOSPORINE
     Indication: PROPHYLAXIS AGAINST GRAFT VERSUS HOST DISEASE
     Dosage: 70 MILLIGRAM, QD
     Route: 042
     Dates: start: 20181016
  3. VANCOMYCIN [Suspect]
     Active Substance: VANCOMYCIN
     Indication: BONE MARROW FAILURE
     Dosage: UNK
     Route: 042
     Dates: start: 20181015, end: 20181016
  4. FORTUM                             /00559702/ [Suspect]
     Active Substance: CEFTAZIDIME
     Indication: BONE MARROW FAILURE
     Dosage: 6 GRAM, QD
     Route: 042
     Dates: start: 20181016, end: 201811
  5. DOXORUBICINE                       /00330901/ [Suspect]
     Active Substance: DOXORUBICIN
     Indication: LYMPHOMA
     Dosage: 533.5 MILLIGRAM
     Route: 041
     Dates: start: 20100212, end: 20160728
  6. RITUXIMAB. [Suspect]
     Active Substance: RITUXIMAB
     Indication: STEM CELL TRANSPLANT
     Dosage: 600 MILLIGRAM, QD
     Route: 042
     Dates: start: 20181002, end: 20181018
  7. CELLCEPT [Suspect]
     Active Substance: MYCOPHENOLATE MOFETIL\MYCOPHENOLATE MOFETIL HYDROCHLORIDE
     Indication: PROPHYLAXIS AGAINST GRAFT VERSUS HOST DISEASE
     Dosage: 2000 MILLIGRAM, QD
     Route: 042
     Dates: start: 20181016
  8. FLUDARABINE [Suspect]
     Active Substance: FLUDARABINE PHOSPHATE
     Indication: STEM CELL TRANSPLANT
     Dosage: 48.5 MILLIGRAM, QD
     Route: 042
     Dates: start: 20181005, end: 20181009
  9. AMIKLIN                            /00391001/ [Suspect]
     Active Substance: AMIKACIN SULFATE
     Indication: BONE MARROW FAILURE
     Dosage: 1 DOSAGE FORM, QD
     Route: 042
     Dates: start: 20181012, end: 20181017
  10. ENDOXAN                            /00021102/ [Suspect]
     Active Substance: CYCLOPHOSPHAMIDE
     Indication: STEM CELL TRANSPLANT
     Dosage: UNK
     Route: 042
     Dates: start: 20181005, end: 20181016

REACTIONS (2)
  - Cardiomyopathy [Not Recovered/Not Resolved]
  - Cardiac failure [Not Recovered/Not Resolved]

NARRATIVE: CASE EVENT DATE: 201810
